FAERS Safety Report 7464257-5 (Version None)
Quarter: 2011Q2

REPORT INFORMATION
  Report Type: 
  Country: None (occurrence: None)
  Receive Date: 20110508
  Receipt Date: 20110425
  Transmission Date: 20111010
  Serious: No
  Sender: FDA-Public Use
  Company Number: US-ROXANE LABORATORIES, INC.-2011-RO-00288RO

PATIENT
  Sex: Female
  Weight: 90 kg

DRUGS (10)
  1. OXCARBAZEPINE [Suspect]
     Dosage: 2400 MG
     Route: 048
     Dates: start: 20110301
  2. MULTI-VITAMIN [Concomitant]
  3. NIFEDIAC CC [Concomitant]
     Indication: HYPERTENSION
     Dosage: 60 MG
     Dates: start: 20090101
  4. TRETINOIN [Concomitant]
     Indication: ACNE
     Dates: start: 20090101
  5. EVAMIST [Concomitant]
     Indication: HOT FLUSH
     Dates: start: 20090101
  6. PLEXION [Concomitant]
     Indication: ACNE
  7. ADALAT [Concomitant]
  8. OS-CAL D [Concomitant]
  9. BENADRYL [Concomitant]
     Indication: UPPER RESPIRATORY TRACT INFECTION
  10. OXCARBAZEPINE [Suspect]
     Indication: PETIT MAL EPILEPSY
     Dosage: 1800 MG
     Route: 048
     Dates: start: 20050101

REACTIONS (5)
  - FEELING ABNORMAL [None]
  - INCONTINENCE [None]
  - DRUG INEFFECTIVE [None]
  - FATIGUE [None]
  - ANTICONVULSANT DRUG LEVEL DECREASED [None]
